FAERS Safety Report 7364738-9 (Version None)
Quarter: 2011Q1

REPORT INFORMATION
  Report Type: 
  Country: None (occurrence: None)
  Receive Date: 20110321
  Receipt Date: 20110314
  Transmission Date: 20110831
  Serious: Yes (Death, Other)
  Sender: FDA-Public Use
  Company Number: IT-CELGENEUS-083-C5013-11021501

PATIENT
  Sex: Female
  Weight: 60 kg

DRUGS (17)
  1. EPREX [Concomitant]
     Dosage: 5714.2857 INTERNATIONAL UNITS MILLIONS
     Route: 058
  2. PLATELETS [Concomitant]
     Indication: MULTIPLE MYELOMA
     Route: 065
     Dates: start: 20090127, end: 20090127
  3. PLATELETS [Concomitant]
     Route: 065
     Dates: start: 20090203, end: 20090203
  4. MELPHALAN [Suspect]
     Indication: MULTIPLE MYELOMA
     Route: 065
     Dates: start: 20050101
  5. EUTIROX [Concomitant]
     Indication: HYPOTHYROIDISM
     Route: 048
  6. PLATELETS [Concomitant]
     Route: 065
     Dates: start: 20090209, end: 20090209
  7. LENALIDOMIDE [Suspect]
     Dosage: 10 MILLIGRAM
     Route: 048
     Dates: start: 20080131, end: 20081129
  8. MELPHALAN [Suspect]
     Route: 048
     Dates: start: 20080130, end: 20081013
  9. ZOLOFT [Concomitant]
     Dosage: 50 MILLIGRAM
     Route: 048
  10. NORMIX [Concomitant]
     Dosage: 800 MILLIGRAM
     Route: 048
  11. PLATELETS [Concomitant]
     Route: 065
     Dates: start: 20090130, end: 20090130
  12. PLATELETS [Concomitant]
     Route: 065
     Dates: start: 20090302, end: 20090302
  13. PREDNISONE [Suspect]
     Indication: MULTIPLE MYELOMA
     Route: 065
     Dates: start: 20050101
  14. PREDNISONE [Suspect]
     Route: 048
     Dates: start: 20080130, end: 20081013
  15. ANTRA [Concomitant]
     Route: 048
  16. TRANEX [Concomitant]
     Dosage: 2 VIALS TWICE A DAY
     Route: 065
  17. LENALIDOMIDE [Suspect]
     Indication: MULTIPLE MYELOMA
     Route: 048
     Dates: start: 20050101

REACTIONS (1)
  - CHRONIC MYELOMONOCYTIC LEUKAEMIA [None]
